FAERS Safety Report 6821989-7 (Version None)
Quarter: 2010Q3

REPORT INFORMATION
  Report Type: 
  Country: None (occurrence: None)
  Receive Date: 20100707
  Receipt Date: 20100707
  Transmission Date: 20110219
  Serious: Yes (Hospitalization)
  Sender: FDA-Public Use
  Company Number: None

PATIENT
  Sex: Female
  Weight: 79 kg

DRUGS (6)
  1. CYCLOPHOSPHAMIDE [Suspect]
     Dosage: 1820 MG
  2. CYTARABINE [Suspect]
     Dosage: 1088 MG
  3. MERCAPTOPURINE [Suspect]
     Dosage: 1400 MG
  4. METHOTREXATE [Suspect]
     Dosage: 30MG
  5. PEG-L ASPARAGINASE (K-H) [Suspect]
     Dosage: 4550MG
  6. VINCRISTINE SULFATE [Suspect]
     Dosage: 2 MG

REACTIONS (1)
  - FEBRILE NEUTROPENIA [None]
